FAERS Safety Report 9499625 (Version 1)
Quarter: 2013Q1

REPORT INFORMATION
  Report Type: Spontaneous
  Country: US (occurrence: None)
  Receive Date: 20130107
  Receipt Date: 20130107
  Transmission Date: 20140127
  Serious: No
  Sender: FDA-Public Use
  Company Number: PHEH2012US022332

PATIENT
  Age: 44 Year
  Sex: Female
  Weight: 74.8 kg

DRUGS (7)
  1. GILENYA [Suspect]
     Indication: MULTIPLE SCLEROSIS
     Route: 048
     Dates: start: 20121107
  2. COUMADIN (WARFARIN SODIUM) [Concomitant]
  3. TRAMADOL (TRAMADOL) [Concomitant]
  4. BACLOFEN (BACLOFEN) [Concomitant]
  5. IRON (IRON) [Concomitant]
  6. VITA-B (ASCORBIC ACID, CYANOCOBALAMIN, NICOTINAMIDE, PANTHENOL, PYRIDOXINE HYDROCHLORIDE, RIBOFLAVIN SODIUM PHOSPHATE, THIAMINE HYDROCHLORIDE) [Concomitant]
  7. TIZANIDINE [Concomitant]

REACTIONS (4)
  - Memory impairment [None]
  - Musculoskeletal stiffness [None]
  - Hypoaesthesia [None]
  - Fatigue [None]
